FAERS Safety Report 17727897 (Version 4)
Quarter: 2021Q1

REPORT INFORMATION
  Report Type: Spontaneous
  Country: US (occurrence: US)
  Receive Date: 20200430
  Receipt Date: 20210208
  Transmission Date: 20210419
  Serious: Yes (Other)
  Sender: FDA-Public Use
  Company Number: US-PFIZER INC-2020173735

PATIENT
  Age: 56 Year
  Sex: Female

DRUGS (1)
  1. XELJANZ XR [Suspect]
     Active Substance: TOFACITINIB CITRATE
     Indication: RHEUMATOID ARTHRITIS
     Dosage: 11 MG, ONCE DAILY
     Route: 048
     Dates: start: 20200319, end: 20201128

REACTIONS (4)
  - Systemic lupus erythematosus [Unknown]
  - Transient ischaemic attack [Unknown]
  - Therapeutic product effect incomplete [Unknown]
  - Anxiety [Unknown]

NARRATIVE: CASE EVENT DATE: 2020
